FAERS Safety Report 4380047-4 (Version None)
Quarter: 2004Q2

REPORT INFORMATION
  Report Type: 
  Country: None (occurrence: None)
  Receive Date: 20040614
  Receipt Date: 20040601
  Transmission Date: 20050107
  Serious: Yes (Other)
  Sender: FDA-Public Use
  Company Number: PERI00204001634

PATIENT
  Age: 47 Year
  Sex: Female

DRUGS (3)
  1. COVERSYL (PERINDOPRIL) [Suspect]
     Indication: HYPERTENSION
     Dosage: 2 MG QD PO, 4 MG DAILY PO
     Route: 048
     Dates: start: 19930101, end: 20040101
  2. COVERSYL (PERINDOPRIL) [Suspect]
     Indication: HYPERTENSION
     Dosage: 2 MG QD PO, 4 MG DAILY PO
     Route: 048
     Dates: start: 20020101, end: 20040603
  3. DOXAZOSIN (DOXAZOSIN) [Concomitant]

REACTIONS (1)
  - PEMPHIGOID [None]
